FAERS Safety Report 12106595 (Version 1)
Quarter: 2016Q1

REPORT INFORMATION
  Report Type: Spontaneous
  Country: US (occurrence: US)
  Receive Date: 20160223
  Receipt Date: 20160223
  Transmission Date: 20160526
  Serious: Yes (Other)
  Sender: FDA-Public Use
  Company Number: US-BRACCO-011738

PATIENT
  Age: 55 Year
  Sex: Female
  Weight: 59 kg

DRUGS (15)
  1. ISOVUE-M [Suspect]
     Active Substance: IOPAMIDOL
     Indication: SPINAL MYELOGRAM
     Route: 037
     Dates: start: 20141217, end: 20141217
  2. IMITREX [Concomitant]
     Active Substance: SUMATRIPTAN SUCCINATE
  3. PREDNISONE. [Concomitant]
     Active Substance: PREDNISONE
     Dates: start: 201412, end: 201412
  4. VITAMIN C [Concomitant]
     Active Substance: ASCORBIC ACID
  5. BENADRYL [Concomitant]
     Active Substance: DIPHENHYDRAMINE HYDROCHLORIDE
     Dates: start: 201412, end: 201412
  6. PHENERGAN [Concomitant]
     Active Substance: PROMETHAZINE HYDROCHLORIDE
  7. VITAMIN D3 [Concomitant]
     Active Substance: CHOLECALCIFEROL
  8. BACTRIM DS [Concomitant]
     Active Substance: SULFAMETHOXAZOLE\TRIMETHOPRIM
  9. PHENOBARBITAL. [Concomitant]
     Active Substance: PHENOBARBITAL
  10. AMITRIPTYLINE HCL [Concomitant]
     Active Substance: AMITRIPTYLINE
  11. CYMBALTA [Concomitant]
     Active Substance: DULOXETINE HYDROCHLORIDE
  12. CALCIUM CARBONATE. [Concomitant]
     Active Substance: CALCIUM CARBONATE
  13. METOPROLOL. [Concomitant]
     Active Substance: METOPROLOL
  14. LUNESTA [Concomitant]
     Active Substance: ESZOPICLONE
  15. MOBIC [Concomitant]
     Active Substance: MELOXICAM

REACTIONS (2)
  - Dyspnoea [Recovered/Resolved]
  - Throat tightness [Recovered/Resolved]

NARRATIVE: CASE EVENT DATE: 20141217
